FAERS Safety Report 19670259 (Version 1)
Quarter: 2021Q3

REPORT INFORMATION
  Report Type: Spontaneous
  Country: US (occurrence: US)
  Receive Date: 20210806
  Receipt Date: 20210806
  Transmission Date: 20211014
  Serious: No
  Sender: FDA-Public Use
  Company Number: US-SAOL THERAPEUTICS-2020SAO00391

PATIENT
  Age: 57 Year
  Sex: Male

DRUGS (2)
  1. LIORESAL [Suspect]
     Active Substance: BACLOFEN
     Dosage: 1364 ?G, \DAY (AS OF 26?AUG?2020)
     Route: 037
     Dates: start: 2020
  2. LIORESAL [Suspect]
     Active Substance: BACLOFEN
     Indication: MUSCLE SPASTICITY
     Dosage: UNK
     Route: 037
     Dates: end: 2020

REACTIONS (3)
  - Muscle spasticity [Not Recovered/Not Resolved]
  - Fall [Recovered/Resolved]
  - Device infusion issue [Not Recovered/Not Resolved]

NARRATIVE: CASE EVENT DATE: 20190701
